FAERS Safety Report 17802253 (Version 1)
Quarter: 2020Q2

REPORT INFORMATION
  Report Type: Spontaneous
  Country: US (occurrence: US)
  Receive Date: 20200518
  Receipt Date: 20200518
  Transmission Date: 20200714
  Serious: No
  Sender: FDA-Public Use
  Company Number: None

PATIENT
  Sex: Female

DRUGS (1)
  1. SOFOSBUVIR/VELSPATASVIR [Suspect]
     Active Substance: SOFOSBUVIR\VELPATASVIR
     Indication: HEPATITIS C
     Dosage: ?          OTHER DOSE:400/100 MG;?
     Route: 048
     Dates: start: 20200325, end: 202005

REACTIONS (8)
  - Photosensitivity reaction [None]
  - Chills [None]
  - Ear discomfort [None]
  - Tremor [None]
  - Myalgia [None]
  - Burning sensation [None]
  - Sleep apnoea syndrome [None]
  - Dyspnoea [None]
